FAERS Safety Report 7755088-7 (Version None)
Quarter: 2011Q3

REPORT INFORMATION
  Report Type: 
  Country: None (occurrence: None)
  Receive Date: 20110914
  Receipt Date: 20110902
  Transmission Date: 20111222
  Serious: Yes (Death, Life-Threatening, Hospitalization)
  Sender: FDA-Public Use
  Company Number: US-CYPR-2011-000035

PATIENT
  Sex: Female
  Weight: 99.3377 kg

DRUGS (8)
  1. CYPHER STENT [Concomitant]
  2. CLOPIDOGREL [Suspect]
     Indication: ANTIPLATELET THERAPY
     Dosage: 75 MG QD ORAL
     Route: 048
     Dates: start: 20110309, end: 20110803
  3. ESCITALOPRAM [Concomitant]
  4. EZETIMIBE [Concomitant]
  5. PLAQUENIL [Concomitant]
  6. ASPIRIN [Suspect]
     Indication: CORONARY ARTERY DISEASE
     Dosage: (81 MG QD ORAL ), (325 MG QD ORAL)
     Route: 048
     Dates: start: 20110801
  7. ASPIRIN [Suspect]
     Indication: CORONARY ARTERY DISEASE
     Dosage: (81 MG QD ORAL ), (325 MG QD ORAL)
     Route: 048
     Dates: start: 20091209, end: 20110801
  8. SIMVASTATIN [Concomitant]

REACTIONS (14)
  - TACHYPNOEA [None]
  - SUDDEN DEATH [None]
  - BUNDLE BRANCH BLOCK [None]
  - LEFT VENTRICULAR DYSFUNCTION [None]
  - EJECTION FRACTION DECREASED [None]
  - CARDIAC DEATH [None]
  - ANGINA UNSTABLE [None]
  - BLOOD GLUCOSE INCREASED [None]
  - QRS AXIS ABNORMAL [None]
  - HYPERHIDROSIS [None]
  - ELECTROCARDIOGRAM ST SEGMENT ELEVATION [None]
  - MYOCARDIAL INFARCTION [None]
  - HYPOTENSION [None]
  - RESPIRATORY FAILURE [None]
